FAERS Safety Report 19215498 (Version 6)
Quarter: 2021Q4

REPORT INFORMATION
  Report Type: Spontaneous
  Country: US (occurrence: US)
  Receive Date: 20210505
  Receipt Date: 20211111
  Transmission Date: 20220303
  Serious: Yes (Hospitalization, Other)
  Sender: FDA-Public Use
  Company Number: US-BIOGEN-2021BI01007177

PATIENT
  Age: 58 Year
  Sex: Male

DRUGS (2)
  1. PLEGRIDY [Suspect]
     Active Substance: PEGINTERFERON BETA-1A
     Indication: Multiple sclerosis
     Route: 058
     Dates: start: 20150827
  2. PLEGRIDY [Suspect]
     Active Substance: PEGINTERFERON BETA-1A
     Route: 058

REACTIONS (6)
  - COVID-19 [Recovered/Resolved]
  - Retroperitoneal haemorrhage [Unknown]
  - Pulmonary embolism [Unknown]
  - Weight decreased [Unknown]
  - Infection [Unknown]
  - Thrombosis [Unknown]

NARRATIVE: CASE EVENT DATE: 20201213
